FAERS Safety Report 8364434-5 (Version None)
Quarter: 2012Q2

REPORT INFORMATION
  Report Type: 
  Country: None (occurrence: None)
  Receive Date: 20120516
  Receipt Date: 20120507
  Transmission Date: 20120825
  Serious: Yes (Hospitalization)
  Sender: FDA-Public Use
  Company Number: US-JNJFOC-20120507905

PATIENT
  Sex: Male
  Weight: 131.54 kg

DRUGS (3)
  1. NUCYNTA ER [Suspect]
     Dosage: 50-100MG/TABLET/50MG/1 OR 2 EVERY 6HOURS AS NEEDED
     Route: 048
     Dates: start: 20110801, end: 20111001
  2. NUCYNTA ER [Suspect]
     Indication: PAIN
     Dosage: 100-200MG/TABLET/100MG/1 OR 2 EVERY 6 HOURS AS NEEDED
     Route: 048
     Dates: start: 20111001
  3. NUCYNTA ER [Suspect]
     Indication: PAIN
     Route: 048
     Dates: start: 20111001, end: 20111001

REACTIONS (3)
  - DRUG EFFECT DECREASED [None]
  - UPPER RESPIRATORY TRACT INFECTION [None]
  - BRONCHOSPASM [None]
